FAERS Safety Report 11211542 (Version 1)
Quarter: 2015Q2

REPORT INFORMATION
  Report Type: Spontaneous
  Country: BR (occurrence: None)
  Receive Date: 20150619
  Receipt Date: 20150619
  Transmission Date: 20150821
  Serious: Yes (Other)
  Sender: FDA-Public Use
  Company Number: A1056909A

PATIENT
  Age: 32 Year
  Sex: Female

DRUGS (5)
  1. LAMIVUDINE AND ZIDOVUDINE [Suspect]
     Active Substance: LAMIVUDINE\ZIDOVUDINE
     Indication: ANTIRETROVIRAL THERAPY
     Route: 048
     Dates: start: 20130703
  2. KALETRA [Suspect]
     Active Substance: LOPINAVIR\RITONAVIR
     Indication: ANTIRETROVIRAL THERAPY
     Dosage: 4 TABLETS/CAPSULES, ORAL
     Route: 048
     Dates: start: 20130703
  3. TRUVADA [Suspect]
     Active Substance: EMTRICITABINE\TENOFOVIR DISOPROXIL FUMARATE
     Indication: ANTIRETROVIRAL THERAPY
     Dosage: 1 TABLET/CAPSULE, ORAL
     Route: 048
     Dates: start: 20120815, end: 20130702
  4. NORVIR [Suspect]
     Active Substance: RITONAVIR
     Indication: ANTIRETROVIRAL THERAPY
     Route: 048
     Dates: start: 20130109, end: 20130702
  5. REYATAZ [Suspect]
     Active Substance: ATAZANAVIR SULFATE
     Indication: ANTIRETROVIRAL THERAPY
     Route: 048
     Dates: start: 20130109, end: 20130702

REACTIONS (4)
  - Pregnancy [None]
  - Abortion spontaneous [None]
  - Cervical incompetence [None]
  - Exposure during pregnancy [None]

NARRATIVE: CASE EVENT DATE: 20130703
